FAERS Safety Report 11274426 (Version 3)
Quarter: 2015Q3

REPORT INFORMATION
  Report Type: Report from Study
  Country: CH (occurrence: CH)
  Receive Date: 20150715
  Receipt Date: 20150817
  Transmission Date: 20151125
  Serious: Yes (Life-Threatening, Other)
  Sender: FDA-Public Use
  Company Number: PHHO2011CH18041

PATIENT
  Age: 68 Year
  Sex: Female
  Weight: 65 kg

DRUGS (13)
  1. LEVOFLOXACIN. [Suspect]
     Active Substance: LEVOFLOXACIN
     Indication: BRONCHITIS
     Dosage: 500 MG, UNK
     Route: 048
     Dates: start: 20111025, end: 20111025
  2. INC424 [Suspect]
     Active Substance: RUXOLITINIB
     Dosage: 5 MG, UNK
     Route: 065
     Dates: start: 20110815
  3. INC424 [Suspect]
     Active Substance: RUXOLITINIB
     Dosage: 1 DF, QD
     Route: 065
     Dates: start: 20120419, end: 20120424
  4. DICLOFENAC [Suspect]
     Active Substance: DICLOFENAC
     Indication: BRONCHITIS
     Dosage: 50 MG, UNK
     Route: 048
     Dates: start: 20111025, end: 20111025
  5. INC424 [Suspect]
     Active Substance: RUXOLITINIB
     Indication: MYELOFIBROSIS
     Dosage: UNK
     Route: 065
     Dates: start: 20110811
  6. INC424 [Suspect]
     Active Substance: RUXOLITINIB
     Dosage: 2 DF, BID
     Route: 065
     Dates: start: 20120619
  7. INC424 [Suspect]
     Active Substance: RUXOLITINIB
     Dosage: 2 DF, BID
     Route: 065
     Dates: start: 20120215, end: 20120405
  8. DICLOFENAC [Suspect]
     Active Substance: DICLOFENAC
     Indication: SINUSITIS
  9. LEVOFLOXACIN. [Suspect]
     Active Substance: LEVOFLOXACIN
     Indication: SINUSITIS
  10. INC424 [Suspect]
     Active Substance: RUXOLITINIB
     Dosage: 1 DF, BID
     Route: 065
     Dates: start: 20120405, end: 20120419
  11. INC424 [Suspect]
     Active Substance: RUXOLITINIB
     Dosage: 3 DF (2 DF IN MORNING AND 1 DF IN EVENING)
     Route: 065
     Dates: start: 20120522, end: 20120529
  12. INC424 [Suspect]
     Active Substance: RUXOLITINIB
     Dosage: 2 DF, BID
     Route: 065
     Dates: start: 20120529, end: 20120604
  13. INC424 [Suspect]
     Active Substance: RUXOLITINIB
     Dosage: 5 DF, 3 DF IN MORNING AND 2 DF IN EVENING
     Route: 065
     Dates: start: 20120605, end: 20120618

REACTIONS (7)
  - Chest discomfort [Unknown]
  - Rash [Recovered/Resolved]
  - Eye swelling [Recovered/Resolved]
  - Infection [Unknown]
  - Pharyngeal oedema [Recovered/Resolved]
  - Thrombocytopenia [Unknown]
  - Anaemia [Unknown]

NARRATIVE: CASE EVENT DATE: 20111025
